FAERS Safety Report 13933107 (Version 2)
Quarter: 2017Q3

REPORT INFORMATION
  Report Type: Spontaneous
  Country: BR (occurrence: BR)
  Receive Date: 20170904
  Receipt Date: 20170905
  Transmission Date: 20171127
  Serious: Yes (Other)
  Sender: FDA-Public Use
  Company Number: BR-PFIZER INC-2017373194

PATIENT
  Sex: Male

DRUGS (1)
  1. CABERGOLINE. [Suspect]
     Active Substance: CABERGOLINE
     Dosage: 9 TABLETS, WEEKLY

REACTIONS (3)
  - Haemoptysis [Not Recovered/Not Resolved]
  - Neoplasm progression [Unknown]
  - Drug ineffective [Unknown]
